FAERS Safety Report 4476703-X (Version None)
Quarter: 2004Q4

REPORT INFORMATION
  Report Type: 
  Country: None (occurrence: None)
  Receive Date: 20041013
  Receipt Date: 20041001
  Transmission Date: 20050328
  Serious: Yes (Death, Other)
  Sender: FDA-Public Use
  Company Number: 163-20785-04100124

PATIENT
  Sex: 0

DRUGS (1)
  1. THALOMID [Suspect]
     Indication: LYMPHOCYTIC LEUKAEMIA
     Dosage: 200MG DAYS 1-14 INCREASING BY 200MG Q2WKS UP TO 1000MG, DAILY, ORAL
     Route: 048

REACTIONS (38)
  - AGITATION [None]
  - ANXIETY [None]
  - ARRHYTHMIA SUPRAVENTRICULAR [None]
  - ARTHRALGIA [None]
  - ASTHENIA [None]
  - ATRIAL FIBRILLATION [None]
  - ATRIAL FLUTTER [None]
  - BLOOD ALKALINE PHOSPHATASE ABNORMAL [None]
  - CHOKING [None]
  - CONFUSIONAL STATE [None]
  - CONSTIPATION [None]
  - DIZZINESS [None]
  - FATIGUE [None]
  - HAEMOGLOBIN DECREASED [None]
  - HEARING IMPAIRED [None]
  - HYPERGLYCAEMIA [None]
  - HYPOALBUMINAEMIA [None]
  - HYPOKALAEMIA [None]
  - HYPOTENSION [None]
  - HYPOXIA [None]
  - INFECTION [None]
  - LETHARGY [None]
  - LUNG INFILTRATION [None]
  - MALAISE [None]
  - MOOD ALTERED [None]
  - NEUROPATHY [None]
  - NEUTROPENIA [None]
  - PLATELET COUNT DECREASED [None]
  - PLEURAL EFFUSION [None]
  - PNEUMONITIS [None]
  - PROTHROMBIN TIME ABNORMAL [None]
  - PROTHROMBIN TIME PROLONGED [None]
  - PRURITUS [None]
  - RASH [None]
  - SINUS TACHYCARDIA [None]
  - SKIN DESQUAMATION [None]
  - TUMOUR FLARE [None]
  - VISION BLURRED [None]
